FAERS Safety Report 5187087-6 (Version None)
Quarter: 2006Q4

REPORT INFORMATION
  Report Type: 
  Country: None (occurrence: None)
  Receive Date: 20061211
  Receipt Date: 20061130
  Transmission Date: 20070319
  Serious: Yes (Hospitalization, Other)
  Sender: FDA-Public Use
  Company Number: HQWYE114017SEP04

PATIENT
  Age: 56 Year
  Sex: Male
  Weight: 76 kg

DRUGS (4)
  1. RAPAMUNE [Suspect]
     Indication: PROPHYLAXIS AGAINST TRANSPLANT REJECTION
     Dosage: 15 MG 1X PER 1 DAY, ORAL
     Route: 048
     Dates: start: 20040730, end: 20041018
  2. PROGRAF [Suspect]
     Indication: PROPHYLAXIS AGAINST TRANSPLANT REJECTION
     Dosage: ORAL
     Route: 048
  3. METOPROLOL TARTRATE [Concomitant]
  4. ZENAPAX [Concomitant]

REACTIONS (10)
  - BLOOD CREATININE INCREASED [None]
  - BLOOD UREA INCREASED [None]
  - DYSPNOEA EXERTIONAL [None]
  - FLUID OVERLOAD [None]
  - HAEMATOCRIT DECREASED [None]
  - HAEMOGLOBIN DECREASED [None]
  - IMMUNOSUPPRESSANT DRUG LEVEL INCREASED [None]
  - NEPHROPATHY TOXIC [None]
  - OEDEMA [None]
  - PLATELET COUNT DECREASED [None]
